FAERS Safety Report 9720422 (Version 2)
Quarter: 2013Q4

REPORT INFORMATION
  Report Type: Spontaneous
  Country: CA (occurrence: CA)
  Receive Date: 20131129
  Receipt Date: 20131129
  Transmission Date: 20140711
  Serious: Yes (Other)
  Sender: FDA-Public Use
  Company Number: CA-AMGEN-CANSP2013042508

PATIENT
  Age: 50 Year
  Sex: Female
  Weight: 61.2 kg

DRUGS (10)
  1. ENBREL [Suspect]
     Indication: RHEUMATOID ARTHRITIS
     Dosage: 50 MG, UNK
     Route: 065
     Dates: start: 20120820, end: 20130401
  2. METHOTREXATE [Concomitant]
     Dosage: UNK
  3. FOLIC ACID [Concomitant]
     Dosage: UNK
  4. PREDNISONE [Concomitant]
     Dosage: UNK
  5. DIPHENHYDRAMINE HCL [Concomitant]
     Indication: PREMEDICATION
     Dosage: 50 MG, UNK
     Route: 048
     Dates: start: 20130430
  6. ACETAMINOPHEN [Concomitant]
     Indication: PREMEDICATION
     Dosage: 650 MG, UNK
     Route: 048
     Dates: start: 20130430
  7. METHYLPREDNISOLONE [Concomitant]
     Indication: PREMEDICATION
     Dosage: 100 MG, UNK
     Route: 042
     Dates: start: 20130430
  8. TYLENOL                            /00020001/ [Concomitant]
     Dosage: UNK
  9. VITAMIN D                          /00107901/ [Concomitant]
     Dosage: UNK
  10. OMEPRAZOLE [Concomitant]
     Dosage: UNK

REACTIONS (6)
  - Hepatic enzyme increased [Unknown]
  - Drug ineffective [Not Recovered/Not Resolved]
  - Weight increased [Unknown]
  - White blood cell count decreased [Unknown]
  - Fatigue [Unknown]
  - Arthralgia [Unknown]
